FAERS Safety Report 7732893-4 (Version None)
Quarter: 2011Q3

REPORT INFORMATION
  Report Type: 
  Country: None (occurrence: None)
  Receive Date: 20110907
  Receipt Date: 20110824
  Transmission Date: 20111222
  Serious: No
  Sender: FDA-Public Use
  Company Number: US-JNJFOC-20110804356

PATIENT
  Sex: Female
  Weight: 62.6 kg

DRUGS (6)
  1. DURAGESIC-100 [Suspect]
     Route: 062
     Dates: start: 20101101, end: 20110701
  2. NEURONTIN [Concomitant]
     Indication: PAIN
     Route: 048
  3. DURAGESIC-100 [Suspect]
     Indication: PAIN
     Route: 062
     Dates: start: 20110701
  4. ZANTAC [Concomitant]
     Indication: ULCER
     Route: 048
  5. LOPRESSOR [Concomitant]
     Indication: BLOOD PRESSURE
     Route: 048
  6. SKELAXIN [Concomitant]
     Indication: PAIN
     Route: 048

REACTIONS (2)
  - DRUG ADMINISTERED AT INAPPROPRIATE SITE [None]
  - DRUG INEFFECTIVE [None]
